FAERS Safety Report 6706677-X (Version None)
Quarter: 2010Q2

REPORT INFORMATION
  Report Type: 
  Country: None (occurrence: None)
  Receive Date: 20100503
  Receipt Date: 20100427
  Transmission Date: 20101027
  Serious: Yes (Life-Threatening)
  Sender: FDA-Public Use
  Company Number: TR-ASTRAZENECA-2010SE18811

PATIENT
  Age: 17871 Day
  Sex: Male
  Weight: 75 kg

DRUGS (5)
  1. CRESTOR [Suspect]
     Indication: HYPERLIPIDAEMIA
     Route: 048
     Dates: start: 20100416, end: 20100417
  2. AZITHROMYCIN [Concomitant]
     Indication: ASTHMA
     Route: 048
     Dates: start: 20100415, end: 20100418
  3. AZITHROMYCIN [Concomitant]
     Indication: BRONCHITIS
     Route: 048
     Dates: start: 20100415, end: 20100418
  4. CEFUROXIME AXETIL [Concomitant]
     Indication: ASTHMA
     Route: 048
     Dates: start: 20100415, end: 20100420
  5. CEFUROXIME AXETIL [Concomitant]
     Indication: BRONCHITIS
     Route: 048
     Dates: start: 20100415, end: 20100420

REACTIONS (1)
  - ANAPHYLACTIC REACTION [None]
